FAERS Safety Report 4755006-X (Version None)
Quarter: 2005Q3

REPORT INFORMATION
  Report Type: 
  Country: None (occurrence: None)
  Receive Date: 20050825
  Receipt Date: 20050813
  Transmission Date: 20060218
  Serious: Yes (Other)
  Sender: FDA-Public Use
  Company Number: 2005116355

PATIENT
  Sex: Female

DRUGS (3)
  1. FRAGMIN [Suspect]
     Indication: THROMBOSIS PROPHYLAXIS
     Dosage: 5000 I.U. (5000 I.U., 1 IN 1 D), SUBCUTANEOUS
     Route: 058
     Dates: start: 20050805, end: 20050810
  2. IMMUNOGLOBULINS (IMMUNOGLOBULINS) [Concomitant]
  3. SUPACEF (CEFUROXIME SODIUM) [Concomitant]

REACTIONS (1)
  - ELECTROCARDIOGRAM CHANGE [None]
